FAERS Safety Report 6916788-1 (Version None)
Quarter: 2010Q3

REPORT INFORMATION
  Report Type: 
  Country: None (occurrence: None)
  Receive Date: 20100809
  Receipt Date: 20100809
  Transmission Date: 20110219
  Serious: Yes (Other)
  Sender: FDA-Public Use
  Company Number: None

PATIENT
  Age: 30 Year
  Sex: Female
  Weight: 77.1115 kg

DRUGS (1)
  1. GIAVNI [Suspect]
     Indication: PREMENSTRUAL SYNDROME
     Dosage: 1 PILL DAILY PO
     Route: 048
     Dates: start: 20100702, end: 20100805

REACTIONS (6)
  - AGITATION [None]
  - ANGER [None]
  - EMOTIONAL DISORDER [None]
  - IRRITABILITY [None]
  - NO THERAPEUTIC RESPONSE [None]
  - PRODUCT SUBSTITUTION ISSUE [None]
